FAERS Safety Report 6906790-8 (Version None)
Quarter: 2010Q3

REPORT INFORMATION
  Report Type: 
  Country: None (occurrence: None)
  Receive Date: 20100804
  Receipt Date: 20100721
  Transmission Date: 20110219
  Serious: Yes (Other)
  Sender: FDA-Public Use
  Company Number: BR-MEDIMMUNE-MEDI-0011453

PATIENT
  Sex: Male
  Weight: 6.27 kg

DRUGS (13)
  1. SYNAGIS [Suspect]
     Route: 030
     Dates: start: 20100427, end: 20100427
  2. SYNAGIS [Suspect]
     Indication: HYDROCEPHALUS
     Route: 030
     Dates: start: 20100608
  3. PROTOVIT PLUS [Concomitant]
     Indication: VITAMIN SUPPLEMENTATION
     Route: 048
     Dates: start: 20090924
  4. FERROUS SULFATE [Concomitant]
     Route: 048
     Dates: start: 20091101
  5. DIMETICONE [Concomitant]
     Route: 048
     Dates: start: 20091101
  6. PREDNISOLONE PHOSPHATE [Concomitant]
     Indication: RESPIRATORY DISORDER
     Route: 048
     Dates: start: 20100504
  7. FENOTEROL HYDROBROMIDE [Concomitant]
     Route: 055
     Dates: start: 20100504
  8. IPRATROPIUM BROMIDE [Concomitant]
     Route: 055
     Dates: start: 20100527, end: 20100527
  9. BUDESONIDE [Concomitant]
     Route: 055
     Dates: start: 20100623
  10. BECLOMETHASONE DIPROPIONATE [Concomitant]
     Route: 055
     Dates: start: 20100527, end: 20100529
  11. BECLOMETHASONE DIPROPIONATE [Concomitant]
     Route: 055
     Dates: start: 20100623, end: 20100628
  12. ANTHELMIN NAKAMURA [Concomitant]
     Route: 048
     Dates: start: 20091126, end: 20100623
  13. DOMPERIDONE [Interacting]
     Route: 048
     Dates: start: 20100623

REACTIONS (11)
  - CONJUNCTIVITIS [None]
  - CONVULSION [None]
  - COUGH [None]
  - EAR INFECTION [None]
  - LISTLESS [None]
  - LUNG INFECTION [None]
  - MUSCLE SPASMS [None]
  - PETIT MAL EPILEPSY [None]
  - PNEUMONIA [None]
  - PYREXIA [None]
  - RHINORRHOEA [None]
